FAERS Safety Report 4299120-4 (Version None)
Quarter: 2004Q1

REPORT INFORMATION
  Report Type: 
  Country: None (occurrence: None)
  Receive Date: 20040217
  Receipt Date: 20040204
  Transmission Date: 20041129
  Serious: Yes (Hospitalization)
  Sender: FDA-Public Use
  Company Number: K200400131

PATIENT
  Age: 83 Year
  Sex: Female
  Weight: 63.5 kg

DRUGS (9)
  1. ALTACE [Suspect]
     Dosage: 2.5 MG QD
     Dates: start: 20031215, end: 20040108
  2. FUROSEMIDE [Concomitant]
  3. GLIPIZIDE [Concomitant]
  4. ARICEPT [Concomitant]
  5. NITROGLYCERIN  A.L.   (GLYCERYL TRINITRATE) [Concomitant]
  6. NEXIUM [Concomitant]
  7. VICODIN [Concomitant]
  8. LIPITOR [Concomitant]
  9. MAXZIDE [Concomitant]

REACTIONS (9)
  - ABDOMINAL PAIN [None]
  - BLOOD PRESSURE INCREASED [None]
  - CARDIAC FAILURE [None]
  - CORONARY ARTERY DISEASE [None]
  - EJECTION FRACTION DECREASED [None]
  - LIMB DISCOMFORT [None]
  - MYOCARDIAL INFARCTION [None]
  - OEDEMA PERIPHERAL [None]
  - WEIGHT INCREASED [None]
